FAERS Safety Report 11233067 (Version 2)
Quarter: 2015Q3

REPORT INFORMATION
  Report Type: Spontaneous
  Country: BR (occurrence: BR)
  Receive Date: 20150701
  Receipt Date: 20150715
  Transmission Date: 20151125
  Serious: Yes (Death, Other)
  Sender: FDA-Public Use
  Company Number: PHHY2015BR079193

PATIENT
  Age: 92 Year
  Sex: Male
  Weight: 68 kg

DRUGS (2)
  1. DIOVAN [Suspect]
     Active Substance: VALSARTAN
     Indication: HYPERTENSION
     Dosage: 80 MG, QD
     Route: 048
  2. MAREVAN [Concomitant]
     Active Substance: WARFARIN SODIUM
     Indication: ANTICOAGULANT THERAPY
     Dosage: 80 MG, QD
     Route: 048

REACTIONS (12)
  - Cataract [Recovered/Resolved]
  - Urethral obstruction [Not Recovered/Not Resolved]
  - Multi-organ failure [Fatal]
  - Eye haemorrhage [Recovered/Resolved]
  - Insomnia [Not Recovered/Not Resolved]
  - Glaucoma [Recovering/Resolving]
  - Hyperhidrosis [Not Recovered/Not Resolved]
  - Cerebrovascular accident [Recovered/Resolved]
  - Haematoma [Not Recovered/Not Resolved]
  - Body height decreased [Not Recovered/Not Resolved]
  - Prostate cancer [Not Recovered/Not Resolved]
  - Dysuria [Not Recovered/Not Resolved]

NARRATIVE: CASE EVENT DATE: 20120112
